FAERS Safety Report 16414521 (Version 3)
Quarter: 2019Q2

REPORT INFORMATION
  Report Type: Spontaneous
  Country: TW (occurrence: TW)
  Receive Date: 20190611
  Receipt Date: 20190627
  Transmission Date: 20190711
  Serious: Yes (Hospitalization, Other)
  Sender: FDA-Public Use
  Company Number: TW-B.I. PHARMACEUTICALS,INC./RIDGEFIELD-2019-BI-026005

PATIENT
  Age: 57 Year
  Sex: Male
  Weight: 80 kg

DRUGS (6)
  1. DIPHENIDOL [Concomitant]
     Active Substance: DIPHENIDOL
     Indication: NAUSEA
     Route: 048
     Dates: start: 20190402
  2. GLIMET [Concomitant]
     Indication: DIABETES MELLITUS
     Dosage: 2/500 MILLIGRAM
     Route: 048
     Dates: start: 20190402
  3. CHLORDIAZEPOXIDE. [Concomitant]
     Active Substance: CHLORDIAZEPOXIDE
     Indication: ANXIETY
     Route: 048
     Dates: start: 20190402
  4. CO-TAREG [Concomitant]
     Active Substance: HYDROCHLOROTHIAZIDE\VALSARTAN
     Indication: HYPERTENSION
     Dosage: DOSE AND DAILY DOSE: 80/12.5 MILLIGRAM
     Route: 048
     Dates: start: 20190402
  5. JARDIANCE [Suspect]
     Active Substance: EMPAGLIFLOZIN
     Indication: TYPE 2 DIABETES MELLITUS
     Dosage: 0.5#, 0.5 TAB QD
     Route: 048
     Dates: start: 20190402
  6. FENOFIBRATE. [Concomitant]
     Active Substance: FENOFIBRATE
     Indication: HYPERLIPIDAEMIA
     Route: 048
     Dates: start: 20190402

REACTIONS (1)
  - Diabetic ketoacidosis [Recovered/Resolved]

NARRATIVE: CASE EVENT DATE: 20190513
